FAERS Safety Report 11545189 (Version 1)
Quarter: 2015Q3

REPORT INFORMATION
  Report Type: Spontaneous
  Country: US (occurrence: US)
  Receive Date: 20150924
  Receipt Date: 20150924
  Transmission Date: 20151125
  Serious: No
  Sender: FDA-Public Use
  Company Number: US-SIGMAPHARM LABORATORIES, LLC-2015SIG00028

PATIENT
  Sex: Female
  Weight: 73.16 kg

DRUGS (4)
  1. ^LEVOTHYROXINE 88 MCG /LIOTHYRONINE 11 MG^ [Concomitant]
     Dosage: UNK UNK, 1X/DAY
  2. LIOTHYRONINE SODIUM. [Suspect]
     Active Substance: LIOTHYRONINE SODIUM
     Indication: POST PROCEDURAL HYPOTHYROIDISM
     Dosage: 12.5 ?G, 2X/DAY
     Route: 048
     Dates: start: 20150728
  3. LIOTHYRONINE SODIUM. [Suspect]
     Active Substance: LIOTHYRONINE SODIUM
     Indication: POST PROCEDURAL HYPOTHYROIDISM
     Dosage: 7.5 ?G, 1X/DAY
     Route: 048
     Dates: start: 201507
  4. PROGESTERONE. [Suspect]
     Active Substance: PROGESTERONE
     Dosage: 20 MG, 2X/DAY
     Dates: start: 20150728, end: 201508

REACTIONS (3)
  - Weight increased [Not Recovered/Not Resolved]
  - Peripheral swelling [Recovered/Resolved]
  - Pain in extremity [Recovered/Resolved]

NARRATIVE: CASE EVENT DATE: 2015
